FAERS Safety Report 17829616 (Version 1)
Quarter: 2020Q2

REPORT INFORMATION
  Report Type: Report from Study
  Country: ES (occurrence: ES)
  Receive Date: 20200527
  Receipt Date: 20200527
  Transmission Date: 20200714
  Serious: Yes (Hospitalization)
  Sender: FDA-Public Use
  Company Number: ES-MYLANLABS-2020M1051129

PATIENT
  Age: 74 Year
  Sex: Female

DRUGS (6)
  1. BECLOMETASONE DIPROPIONATE W/FORMOTEROL FUMAR [Concomitant]
     Active Substance: BECLOMETHASONE\FORMOTEROL
     Indication: ASTHMA
     Dosage: 24 MICROGRAM, QD
     Route: 055
     Dates: start: 20171107, end: 20191109
  2. WARFARINA SODICA [Interacting]
     Active Substance: WARFARIN SODIUM
     Indication: THROMBOSIS PROPHYLAXIS
     Dosage: UNK
     Route: 048
     Dates: start: 20161007, end: 20191109
  3. NAPROXENO                          /00256201/ [Interacting]
     Active Substance: NAPROXEN
     Indication: PAIN
     Dosage: 1.2 GRAM, QD
     Route: 048
     Dates: start: 20191105, end: 20191109
  4. PARACETAMOL [Concomitant]
     Active Substance: ACETAMINOPHEN
     Indication: PAIN
     Dosage: 1 GRAM 12 H
     Route: 048
     Dates: end: 20191109
  5. SERTRALINE [Interacting]
     Active Substance: SERTRALINE HYDROCHLORIDE
     Indication: DEPRESSION
     Dosage: 50 MILLIGRAM, QD
     Route: 048
     Dates: start: 20180814, end: 20191109
  6. SIMVASTATIN. [Suspect]
     Active Substance: SIMVASTATIN
     Indication: HYPERCHOLESTEROLAEMIA
     Dosage: 20 MILLIGRAM, QD
     Route: 048
     Dates: start: 201910, end: 20191109

REACTIONS (3)
  - Drug interaction [Unknown]
  - Lower gastrointestinal haemorrhage [Recovered/Resolved]
  - Upper gastrointestinal haemorrhage [Recovered/Resolved]

NARRATIVE: CASE EVENT DATE: 20191109
